FAERS Safety Report 21372298 (Version 1)
Quarter: 2022Q3

REPORT INFORMATION
  Report Type: Other
  Country: CA (occurrence: CA)
  Receive Date: 20220924
  Receipt Date: 20220924
  Transmission Date: 20221027
  Serious: Yes (Other)
  Sender: FDA-Public Use
  Company Number: CA-CELLTRION INC.-2022CA015092

PATIENT

DRUGS (122)
  1. RITUXIMAB [Suspect]
     Active Substance: RITUXIMAB
     Indication: Product used for unknown indication
     Dosage: UNK
     Route: 065
  2. ADALIMUMAB [Suspect]
     Active Substance: ADALIMUMAB
     Indication: Product used for unknown indication
     Dosage: 40.0 MILLIGRAM
     Route: 058
  3. ACETAMINOPHEN [Suspect]
     Active Substance: ACETAMINOPHEN
     Indication: Product used for unknown indication
     Dosage: UNK
     Route: 065
  4. ACETAMINOPHEN\OXYCODONE HYDROCHLORIDE [Suspect]
     Active Substance: ACETAMINOPHEN\OXYCODONE HYDROCHLORIDE
     Indication: Product used for unknown indication
     Dosage: UNK
     Route: 065
  5. ACTEMRA [Suspect]
     Active Substance: TOCILIZUMAB
     Indication: Rheumatoid arthritis
     Dosage: 160.0 MILLIGRAM
     Route: 058
  6. ALENDRONIC ACID [Suspect]
     Active Substance: ALENDRONIC ACID
     Indication: Product used for unknown indication
     Dosage: UNK
     Route: 048
  7. ALENDRONIC ACID [Suspect]
     Active Substance: ALENDRONIC ACID
     Dosage: UNK
     Route: 048
  8. AMITRIPTYLINE [Suspect]
     Active Substance: AMITRIPTYLINE
     Indication: Product used for unknown indication
     Dosage: 75.0 MILLIGRAM 1 EVERY 1 DAYS
     Route: 048
  9. AMITRIPTYLINE [Suspect]
     Active Substance: AMITRIPTYLINE
     Dosage: 75.0 MILLIGRAM 1 EVERY 1 DAYS
     Route: 048
  10. AMOXICILLIN [Suspect]
     Active Substance: AMOXICILLIN
     Indication: Product used for unknown indication
     Dosage: UNK
     Route: 065
  11. ALENDRONATE SODIUM [Suspect]
     Active Substance: ALENDRONATE SODIUM
     Indication: Product used for unknown indication
     Dosage: UNK
     Route: 065
  12. ALENDRONATE SODIUM [Suspect]
     Active Substance: ALENDRONATE SODIUM
     Dosage: UNK
     Route: 065
  13. RANITIDINE [Suspect]
     Active Substance: RANITIDINE
     Indication: Product used for unknown indication
     Dosage: 300.0 MILLIGRAM 1 EVERY 1 WEEKS
     Route: 048
  14. RANITIDINE [Suspect]
     Active Substance: RANITIDINE
     Dosage: UNK
     Route: 048
  15. RANITIDINE [Suspect]
     Active Substance: RANITIDINE
     Dosage: 15.0 MILLIGRAM 2 EVERY 1 DAYS
     Route: 048
  16. RANITIDINE [Suspect]
     Active Substance: RANITIDINE
     Dosage: 300.0 MILLIGRAM 1 EVERY 1 DAYS
     Route: 048
  17. RANITIDINE [Suspect]
     Active Substance: RANITIDINE
     Dosage: 150.0 MILLIGRAM 2 EVERY 1 DAYS
     Route: 048
  18. RANITIDINE [Suspect]
     Active Substance: RANITIDINE
     Dosage: 300.0 MILLIGRAM 1 EVERY 1 DAYS
     Route: 048
  19. ARAVA [Suspect]
     Active Substance: LEFLUNOMIDE
     Indication: Product used for unknown indication
     Dosage: UNK
     Route: 065
  20. AZATHIOPRINE [Suspect]
     Active Substance: AZATHIOPRINE
     Indication: Product used for unknown indication
     Dosage: UNK
     Route: 065
  21. AZATHIOPRINE [Suspect]
     Active Substance: AZATHIOPRINE
     Dosage: 150.0 MILLIGRAM
     Route: 065
  22. BACTRIM [Suspect]
     Active Substance: SULFAMETHOXAZOLE\TRIMETHOPRIM
     Indication: Product used for unknown indication
     Dosage: UNK
     Route: 065
  23. CIMZIA [Suspect]
     Active Substance: CERTOLIZUMAB PEGOL
     Indication: Product used for unknown indication
     Dosage: UNK
     Route: 065
  24. DEPO-MEDROL [Suspect]
     Active Substance: METHYLPREDNISOLONE ACETATE
     Indication: Rheumatoid arthritis
     Dosage: UNK
     Route: 014
  25. DEPO-MEDROL [Suspect]
     Active Substance: METHYLPREDNISOLONE ACETATE
     Dosage: UNK
     Route: 065
  26. ALLOPURINOL [Suspect]
     Active Substance: ALLOPURINOL
     Indication: Product used for unknown indication
     Dosage: 75.0 MILLIGRAM 1 EVERY 1 DAYS
     Route: 048
  27. ENBREL [Suspect]
     Active Substance: ETANERCEPT
     Indication: Rheumatoid arthritis
     Dosage: 50 MILLIGRAM 1 EVERY 1 WEEKS
     Route: 003
  28. ENBREL [Suspect]
     Active Substance: ETANERCEPT
     Dosage: 50 GRAM 1 EVERY 1 DAYS
     Route: 003
  29. ENBREL [Suspect]
     Active Substance: ETANERCEPT
     Dosage: 50 MILLIGRAM 1 EVERY 1 WEEKS
     Route: 003
  30. ENBREL [Suspect]
     Active Substance: ETANERCEPT
     Dosage: 50 MICROGRAM 1 EVERY 1 DAYS
     Route: 003
  31. ESOMEPRAZOLE MAGNESIUM\NAPROXEN [Suspect]
     Active Substance: ESOMEPRAZOLE MAGNESIUM\NAPROXEN
     Indication: Rheumatoid arthritis
     Dosage: UNK
     Route: 048
  32. FOSAMAX [Suspect]
     Active Substance: ALENDRONATE SODIUM
     Indication: Product used for unknown indication
     Dosage: UNK
     Route: 065
  33. GOLD [Suspect]
     Active Substance: GOLD
     Indication: Product used for unknown indication
     Dosage: UNK
     Route: 065
  34. HUMIRA [Suspect]
     Active Substance: ADALIMUMAB
     Indication: Drug therapy
     Dosage: 40 MILLIGRAM
     Route: 003
  35. HYDROXYCHLOROQUINE [Suspect]
     Active Substance: HYDROXYCHLOROQUINE
     Indication: Product used for unknown indication
     Dosage: UNK
     Route: 065
  36. HYDROXYCHLOROQUINE [Suspect]
     Active Substance: HYDROXYCHLOROQUINE
     Dosage: UNK
     Route: 065
  37. HYDROXYCHLOROQUINE [Suspect]
     Active Substance: HYDROXYCHLOROQUINE
     Indication: Product used for unknown indication
     Dosage: UNK
     Route: 065
  38. IMURAN [Suspect]
     Active Substance: AZATHIOPRINE
     Indication: Product used for unknown indication
     Dosage: 150 MILLIGRAM
     Route: 065
  39. IMURAN [Suspect]
     Active Substance: AZATHIOPRINE
     Dosage: 150 MILLIGRAM
     Route: 065
  40. LEFLUNOMIDE [Suspect]
     Active Substance: LEFLUNOMIDE
     Indication: Product used for unknown indication
     Dosage: UNK
     Route: 065
  41. LYRICA [Suspect]
     Active Substance: PREGABALIN
     Indication: Rheumatoid arthritis
     Dosage: 150 MILLIGRAM 2 EVERY 1 DAYS
     Route: 048
  42. LYRICA [Suspect]
     Active Substance: PREGABALIN
     Dosage: 150 MILLIGRAM 2 EVERY 1 DAYS
     Route: 048
  43. LYRICA [Suspect]
     Active Substance: PREGABALIN
     Dosage: 300 MILLIGRAM 1 EVERY 1 DAYS
     Route: 048
  44. MELOXICAM [Suspect]
     Active Substance: MELOXICAM
     Indication: Product used for unknown indication
     Dosage: UNK
     Route: 065
  45. METHOTREXATE [Suspect]
     Active Substance: METHOTREXATE
     Indication: Rheumatoid arthritis
     Dosage: 20 MILLIGRAM 1 EVERY 1 WEEKS
     Route: 003
  46. METHOTREXATE [Suspect]
     Active Substance: METHOTREXATE
     Dosage: 20 MILLIGRAM 1 EVERY 1 WEEKS
     Route: 003
  47. METHOTREXATE [Suspect]
     Active Substance: METHOTREXATE
     Dosage: 20 MILLIGRAM 1 EVERY 1 WEEKS
     Route: 048
  48. METHOTREXATE [Suspect]
     Active Substance: METHOTREXATE
     Dosage: 20 MILLIGRAM 1 EVERY 1 WEEKS
     Route: 003
  49. METHOTREXATE [Suspect]
     Active Substance: METHOTREXATE
     Dosage: 20 MILLIGRAM
     Route: 003
  50. METHOTREXATE [Suspect]
     Active Substance: METHOTREXATE
     Dosage: UNK
     Route: 003
  51. MELOXICAM [Suspect]
     Active Substance: MELOXICAM
     Indication: Product used for unknown indication
     Dosage: UNK
     Route: 065
  52. MELOXICAM [Suspect]
     Active Substance: MELOXICAM
     Dosage: 150 MILLIGRAM 1 EVERY 1 DAYS
     Route: 065
  53. MELOXICAM [Suspect]
     Active Substance: MELOXICAM
     Dosage: UNK
     Route: 065
  54. MELOXICAM [Suspect]
     Active Substance: MELOXICAM
     Dosage: 150 MILLIGRAM 1 EVERY 1 DAYS
     Route: 065
  55. NAPROXEN [Suspect]
     Active Substance: NAPROXEN
     Indication: Product used for unknown indication
     Dosage: 250 MG 1 EVERY 12 HOURS
     Route: 065
  56. NAPROXEN [Suspect]
     Active Substance: NAPROXEN
     Dosage: 500 MG 1 EVERY 12 HOURS
     Route: 065
  57. NAPROXEN [Suspect]
     Active Substance: NAPROXEN
     Dosage: 250 MG 1 EVERY 12 HOURS
     Route: 065
  58. NAPROXEN [Suspect]
     Active Substance: NAPROXEN
     Dosage: 1000 MG 1 EVERY 12 HOURS
     Route: 048
  59. NAPROXEN [Suspect]
     Active Substance: NAPROXEN
     Dosage: 500 MG 1 EVERY 12 HOURS
     Route: 065
  60. NAPROXEN [Suspect]
     Active Substance: NAPROXEN
     Indication: Product used for unknown indication
     Dosage: 500 MILLIGRAM 1 EVERY 12 HOURS
     Route: 065
  61. NAPROXEN [Suspect]
     Active Substance: NAPROXEN
     Dosage: 500 MILLIGRAM 2 EVERY 1 DAYS
     Route: 065
  62. NAPROXEN [Suspect]
     Active Substance: NAPROXEN
     Dosage: 1000 MILLIGRAM
     Route: 065
  63. NAPROXEN [Suspect]
     Active Substance: NAPROXEN
     Dosage: 500 MILLIGRAM 1 EVERY 1 DAYS
     Route: 065
  64. NAPROXEN [Suspect]
     Active Substance: NAPROXEN
     Dosage: 1000 MILLIGRAM 1 EVERY 1 DAYS
     Route: 065
  65. NAPROXEN [Suspect]
     Active Substance: NAPROXEN
     Dosage: 1000 MILLIGRAM 1 EVERY 1 DAYS
     Route: 048
  66. NAPROXEN [Suspect]
     Active Substance: NAPROXEN
     Dosage: 1000 MILLIGRAM 1 EVERY 1 DAYS
     Route: 065
  67. NAPROXEN [Suspect]
     Active Substance: NAPROXEN
     Dosage: 500 MILLIGRAM 2 EVERY 1 DAYS
     Route: 065
  68. NAPROXEN [Suspect]
     Active Substance: NAPROXEN
     Dosage: 1000 MILLIGRAM 1 EVERY 1 DAYS
     Route: 065
  69. NAPROXEN [Suspect]
     Active Substance: NAPROXEN
     Dosage: 250 MILLIGRAM 1 EVERY 12 HOURS
     Route: 065
  70. NAPROXEN [Suspect]
     Active Substance: NAPROXEN
     Dosage: 500 MILLIGRAM 2 EVERY 1 DAYS
     Route: 065
  71. NAPROXEN [Suspect]
     Active Substance: NAPROXEN
     Dosage: 500 MILLIGRAM 1 EVERY 1 DAYS
     Route: 048
  72. ORENCIA [Suspect]
     Active Substance: ABATACEPT
     Indication: Product used for unknown indication
     Dosage: 125 MILLIGRAM 1 EVERY 1 DAYS
     Route: 058
  73. OXYCODONE AND ACETAMINOPHEN [Suspect]
     Active Substance: ACETAMINOPHEN\OXYCODONE HYDROCHLORIDE
     Indication: Product used for unknown indication
     Dosage: UNK
     Route: 065
  74. OXYCODONE AND ACETAMINOPHEN [Suspect]
     Active Substance: ACETAMINOPHEN\OXYCODONE HYDROCHLORIDE
     Dosage: UNK
     Route: 065
  75. OXYCODONE AND ACETAMINOPHEN [Suspect]
     Active Substance: ACETAMINOPHEN\OXYCODONE HYDROCHLORIDE
     Dosage: UNK
     Route: 065
  76. OXYCODONE AND ACETAMINOPHEN [Suspect]
     Active Substance: ACETAMINOPHEN\OXYCODONE HYDROCHLORIDE
     Dosage: UNK
     Route: 065
  77. OXYCODONE AND ACETAMINOPHEN [Suspect]
     Active Substance: ACETAMINOPHEN\OXYCODONE HYDROCHLORIDE
     Dosage: UNK
     Route: 065
  78. PANTOPRAZOLE SODIUM [Suspect]
     Active Substance: PANTOPRAZOLE SODIUM
     Indication: Product used for unknown indication
     Dosage: UNK
     Route: 048
  79. PANTOPRAZOLE SODIUM [Suspect]
     Active Substance: PANTOPRAZOLE SODIUM
     Dosage: UNK
     Route: 065
  80. PANTOPRAZOLE SODIUM [Suspect]
     Active Substance: PANTOPRAZOLE SODIUM
     Dosage: UNK
     Route: 065
  81. PANTOPRAZOLE SODIUM [Suspect]
     Active Substance: PANTOPRAZOLE SODIUM
     Dosage: UNK
     Route: 065
  82. PANTOPRAZOLE SODIUM [Suspect]
     Active Substance: PANTOPRAZOLE SODIUM
     Dosage: UNK
     Route: 048
  83. PANTOPRAZOLE SODIUM [Suspect]
     Active Substance: PANTOPRAZOLE SODIUM
     Dosage: UNK
     Route: 065
  84. PANTOPRAZOLE SODIUM [Suspect]
     Active Substance: PANTOPRAZOLE SODIUM
     Dosage: UNK
     Route: 048
  85. PANTOPRAZOLE [Suspect]
     Active Substance: PANTOPRAZOLE
     Indication: Product used for unknown indication
     Dosage: UNK
     Route: 048
  86. PREDNISONE [Suspect]
     Active Substance: PREDNISONE
     Indication: Rheumatoid arthritis
     Dosage: 15 MG 1 EVERY 1 DAYS
     Route: 048
  87. PREDNISONE [Suspect]
     Active Substance: PREDNISONE
     Dosage: UNK
     Route: 048
  88. PREDNISONE [Suspect]
     Active Substance: PREDNISONE
     Dosage: 150 MG 1 EVERY 1 DAYS
     Route: 048
  89. PREDNISONE [Suspect]
     Active Substance: PREDNISONE
     Dosage: 150 MG 1 EVERY 1 DAYS
     Route: 048
  90. PREDNISONE [Suspect]
     Active Substance: PREDNISONE
     Dosage: 15 MG 1 EVERY 1 DAYS
     Route: 048
  91. PREDNISONE [Suspect]
     Active Substance: PREDNISONE
     Dosage: UNK
     Route: 048
  92. PREGABALIN [Suspect]
     Active Substance: PREGABALIN
     Indication: Rheumatoid arthritis
     Dosage: 150 MILLIGRAM 1 EVERY 1 DAYS
     Route: 048
  93. PREGABALIN [Suspect]
     Active Substance: PREGABALIN
     Dosage: 150 MILLIGRAM 1 EVERY 1 DAYS
     Route: 048
  94. RANITIDINE [Suspect]
     Active Substance: RANITIDINE
     Indication: Product used for unknown indication
     Dosage: 150 MILLIGRAM 2 EVERY 1 DAYS
     Route: 048
  95. RANITIDINE [Suspect]
     Active Substance: RANITIDINE
     Indication: Product used for unknown indication
     Dosage: 300 MILLIGRAM 1 EVERY 1 DAYS
     Route: 048
  96. REMICADE [Suspect]
     Active Substance: INFLIXIMAB
     Indication: Product used for unknown indication
     Dosage: UNK
     Route: 042
  97. SEPTRA [Suspect]
     Active Substance: SULFAMETHOXAZOLE\TRIMETHOPRIM
     Indication: Product used for unknown indication
     Dosage: UNK
     Route: 065
  98. SEPTRA [Suspect]
     Active Substance: SULFAMETHOXAZOLE\TRIMETHOPRIM
     Dosage: UNK
     Route: 065
  99. SIMPONI [Suspect]
     Active Substance: GOLIMUMAB
     Indication: Product used for unknown indication
     Dosage: UNK
     Route: 058
  100. SULFAMETHOXAZOLE [Suspect]
     Active Substance: SULFAMETHOXAZOLE
     Indication: Product used for unknown indication
     Dosage: UNK
     Route: 065
  101. SULFAMETHOXAZOLE AND TRIMETHOPRIM [Suspect]
     Active Substance: SULFAMETHOXAZOLE\TRIMETHOPRIM
     Indication: Product used for unknown indication
     Dosage: UNK
     Route: 065
  102. SULFASALAZINE [Suspect]
     Active Substance: SULFASALAZINE
     Indication: Rheumatoid arthritis
     Dosage: 1000 MILLIGRAM 1 EVERY 1 WEEKS
     Route: 048
  103. SULFASALAZINE [Suspect]
     Active Substance: SULFASALAZINE
     Dosage: 1 GRAM 1 EVERY 1 DAYS
     Route: 048
  104. SULFASALAZINE [Suspect]
     Active Substance: SULFASALAZINE
     Dosage: 1 GRAM 1 EVERY 1 DAYS
     Route: 048
  105. TRIMETHOPRIM [Suspect]
     Active Substance: TRIMETHOPRIM
     Indication: Product used for unknown indication
     Dosage: UNK
     Route: 065
  106. VIMOVO [Suspect]
     Active Substance: ESOMEPRAZOLE MAGNESIUM\NAPROXEN
     Indication: Product used for unknown indication
     Dosage: UNK
     Route: 048
  107. VIMOVO [Suspect]
     Active Substance: ESOMEPRAZOLE MAGNESIUM\NAPROXEN
     Dosage: UNK
     Route: 065
  108. XELJANZ [Suspect]
     Active Substance: TOFACITINIB CITRATE
     Indication: Rheumatoid arthritis
     Dosage: 2 DOSAGE FORMS 1 EVERY 1 DAYS
     Route: 048
  109. XELJANZ [Suspect]
     Active Substance: TOFACITINIB CITRATE
     Dosage: 5 MILLIGRAM 2 EVERY 1 DAYS
     Route: 048
  110. XELJANZ [Suspect]
     Active Substance: TOFACITINIB CITRATE
     Dosage: 2 MILLIGRAM 1 EVERY 12 HOURS
     Route: 048
  111. XELJANZ [Suspect]
     Active Substance: TOFACITINIB CITRATE
     Dosage: 2 MILLIGRAM 1 EVERY 1 DAYS
     Route: 048
  112. XELJANZ [Suspect]
     Active Substance: TOFACITINIB CITRATE
     Dosage: 10 MILLIGRAM 1 EVERY 1 DAYS
     Route: 048
  113. XELJANZ [Suspect]
     Active Substance: TOFACITINIB CITRATE
     Dosage: 2 MILLIGRAM 1 EVERY 1 DAYS
     Route: 048
  114. XELJANZ [Suspect]
     Active Substance: TOFACITINIB CITRATE
     Dosage: 5 MILLIGRAM 1 EVERY 12 HOURS
     Route: 048
  115. XELJANZ [Suspect]
     Active Substance: TOFACITINIB CITRATE
     Dosage: 5 MILLIGRAM 1 EVERY 12 HOURS
     Route: 048
  116. CANNABIS SATIVA SUBSP. INDICA TOP [Concomitant]
     Active Substance: CANNABIS SATIVA SUBSP. INDICA TOP
     Dosage: UNK
  117. CELEBREX [Concomitant]
     Active Substance: CELECOXIB
     Dosage: UNK
  118. CODEINE [Concomitant]
     Active Substance: CODEINE
     Dosage: UNK
     Route: 065
  119. DEXILANT [Concomitant]
     Active Substance: DEXLANSOPRAZOLE
     Dosage: UNK
  120. LEVOTHYROXINE [Concomitant]
     Active Substance: LEVOTHYROXINE
  121. FOLIC ACID [Concomitant]
     Active Substance: FOLIC ACID
     Dosage: UNK
  122. PLAQUENIL [Concomitant]
     Active Substance: HYDROXYCHLOROQUINE SULFATE
     Dosage: UNK
     Route: 065

REACTIONS (81)
  - Allergy to chemicals [Not Recovered/Not Resolved]
  - Antinuclear antibody positive [Not Recovered/Not Resolved]
  - Arthritis [Not Recovered/Not Resolved]
  - Atelectasis [Not Recovered/Not Resolved]
  - Bone density decreased [Not Recovered/Not Resolved]
  - C-reactive protein increased [Not Recovered/Not Resolved]
  - Crepitations [Not Recovered/Not Resolved]
  - Cushingoid [Not Recovered/Not Resolved]
  - Deformity [Not Recovered/Not Resolved]
  - Drug intolerance [Not Recovered/Not Resolved]
  - Dry eye [Not Recovered/Not Resolved]
  - Dry mouth [Not Recovered/Not Resolved]
  - Eye irritation [Not Recovered/Not Resolved]
  - Eye pain [Not Recovered/Not Resolved]
  - Feeling abnormal [Not Recovered/Not Resolved]
  - Feeling jittery [Not Recovered/Not Resolved]
  - Fibromyalgia [Not Recovered/Not Resolved]
  - Flank pain [Not Recovered/Not Resolved]
  - Hand deformity [Not Recovered/Not Resolved]
  - Impaired work ability [Not Recovered/Not Resolved]
  - Joint effusion [Not Recovered/Not Resolved]
  - Joint range of motion decreased [Not Recovered/Not Resolved]
  - Liver disorder [Not Recovered/Not Resolved]
  - Musculoskeletal stiffness [Not Recovered/Not Resolved]
  - Nodule [Not Recovered/Not Resolved]
  - Ocular hyperaemia [Not Recovered/Not Resolved]
  - Photophobia [Not Recovered/Not Resolved]
  - Pleuritic pain [Not Recovered/Not Resolved]
  - Pulmonary toxicity [Not Recovered/Not Resolved]
  - Rheumatoid arthritis [Not Recovered/Not Resolved]
  - Rheumatoid nodule [Not Recovered/Not Resolved]
  - Scleritis [Not Recovered/Not Resolved]
  - Skin ulcer [Not Recovered/Not Resolved]
  - Synovial cyst [Not Recovered/Not Resolved]
  - Synovial fluid analysis [Not Recovered/Not Resolved]
  - Tenderness [Not Recovered/Not Resolved]
  - Tenosynovitis [Not Recovered/Not Resolved]
  - Tenosynovitis stenosans [Not Recovered/Not Resolved]
  - Thrombosis [Not Recovered/Not Resolved]
  - Ulcer [Not Recovered/Not Resolved]
  - Abdominal pain [Not Recovered/Not Resolved]
  - Arthralgia [Not Recovered/Not Resolved]
  - Back pain [Not Recovered/Not Resolved]
  - Bursitis [Not Recovered/Not Resolved]
  - Conjunctivitis [Not Recovered/Not Resolved]
  - Diarrhoea [Not Recovered/Not Resolved]
  - Dizziness [Not Recovered/Not Resolved]
  - Dyspnoea [Not Recovered/Not Resolved]
  - Erythema [Not Recovered/Not Resolved]
  - Fatigue [Not Recovered/Not Resolved]
  - Haemoglobin decreased [Not Recovered/Not Resolved]
  - Infection [Not Recovered/Not Resolved]
  - Inflammation [Not Recovered/Not Resolved]
  - Interstitial lung disease [Not Recovered/Not Resolved]
  - Joint swelling [Not Recovered/Not Resolved]
  - Lung disorder [Not Recovered/Not Resolved]
  - Malaise [Not Recovered/Not Resolved]
  - Muscular weakness [Not Recovered/Not Resolved]
  - Musculoskeletal pain [Not Recovered/Not Resolved]
  - Myalgia [Not Recovered/Not Resolved]
  - Nausea [Not Recovered/Not Resolved]
  - Neoplasm malignant [Not Recovered/Not Resolved]
  - Pain [Not Recovered/Not Resolved]
  - Pain in extremity [Not Recovered/Not Resolved]
  - Peripheral swelling [Not Recovered/Not Resolved]
  - Pneumonia [Not Recovered/Not Resolved]
  - Pruritus [Not Recovered/Not Resolved]
  - Rash [Not Recovered/Not Resolved]
  - Rash maculo-papular [Not Recovered/Not Resolved]
  - Rash pruritic [Not Recovered/Not Resolved]
  - Red blood cell count decreased [Not Recovered/Not Resolved]
  - Swelling face [Not Recovered/Not Resolved]
  - Upper respiratory tract infection [Not Recovered/Not Resolved]
  - Visual impairment [Not Recovered/Not Resolved]
  - Wheezing [Not Recovered/Not Resolved]
  - White blood cell count decreased [Not Recovered/Not Resolved]
  - Contraindicated product administered [Not Recovered/Not Resolved]
  - Drug ineffective [Not Recovered/Not Resolved]
  - Off label use [Not Recovered/Not Resolved]
  - Therapeutic product effect decreased [Not Recovered/Not Resolved]
  - Treatment failure [Not Recovered/Not Resolved]
